FAERS Safety Report 5707578-6 (Version None)
Quarter: 2008Q2

REPORT INFORMATION
  Report Type: 
  Country: None (occurrence: None)
  Receive Date: 20080416
  Receipt Date: 20080404
  Transmission Date: 20081010
  Serious: Yes (Hospitalization, Other)
  Sender: FDA-Public Use
  Company Number: FR-PFIZER INC-2008014061

PATIENT
  Sex: Male
  Weight: 61 kg

DRUGS (2)
  1. LYRICA [Suspect]
     Indication: SCIATICA
     Route: 048
     Dates: start: 20071101, end: 20080211
  2. LYRICA [Suspect]
     Indication: NEURALGIA

REACTIONS (1)
  - ATRIOVENTRICULAR BLOCK [None]
